FAERS Safety Report 5844285-3 (Version None)
Quarter: 2008Q3

REPORT INFORMATION
  Report Type: 
  Country: None (occurrence: None)
  Receive Date: 20080813
  Receipt Date: 20080801
  Transmission Date: 20090109
  Serious: Yes (Other)
  Sender: FDA-Public Use
  Company Number: GB-PFIZER INC-2008066381

PATIENT

DRUGS (1)
  1. NICOTINE [Suspect]
     Route: 045

REACTIONS (1)
  - SYNCOPE [None]
